FAERS Safety Report 9988902 (Version 1)
Quarter: 2014Q1

REPORT INFORMATION
  Report Type: Report from Study
  Country: US (occurrence: US)
  Receive Date: 20140310
  Receipt Date: 20140310
  Transmission Date: 20141002
  Serious: No
  Sender: FDA-Public Use
  Company Number: US-ABBVIE-13P-163-1128914-00

PATIENT
  Age: 34 Year
  Sex: Female

DRUGS (2)
  1. HUMIRA [Suspect]
     Indication: RHEUMATOID ARTHRITIS
     Dates: start: 201307
  2. HUMIRA [Suspect]
     Dosage: SECOND DOSE
     Dates: start: 20130717

REACTIONS (3)
  - Skin discolouration [Recovering/Resolving]
  - Muscle spasms [Recovering/Resolving]
  - Injection site pain [Recovering/Resolving]
